FAERS Safety Report 14354394 (Version 4)
Quarter: 2018Q4

REPORT INFORMATION
  Report Type: Report from Study
  Country: JP (occurrence: JP)
  Receive Date: 20180105
  Receipt Date: 20181207
  Transmission Date: 20190204
  Serious: Yes (Hospitalization, Other)
  Sender: FDA-Public Use
  Company Number: JP-ASTELLAS-2009JP000585

PATIENT
  Age: 21 Year
  Sex: Female
  Weight: 54 kg

DRUGS (127)
  1. PREDNISOLONE. [Suspect]
     Active Substance: PREDNISOLONE
     Route: 048
     Dates: start: 20071210, end: 20080922
  2. PREDNISOLONE. [Suspect]
     Active Substance: PREDNISOLONE
     Route: 048
     Dates: start: 20080922, end: 20081201
  3. PREDNISOLONE. [Suspect]
     Active Substance: PREDNISOLONE
     Route: 048
     Dates: start: 20120816, end: 20120913
  4. GASTER [Concomitant]
     Active Substance: FAMOTIDINE
     Route: 048
     Dates: start: 20091005, end: 20091103
  5. MUCOSTA [Concomitant]
     Active Substance: REBAMIPIDE
     Indication: INFLUENZA
     Route: 048
     Dates: start: 20090501, end: 20090505
  6. MUCOSTA [Concomitant]
     Active Substance: REBAMIPIDE
     Route: 048
     Dates: start: 20151029, end: 20151111
  7. TAKEPRON [Concomitant]
     Active Substance: LANSOPRAZOLE
     Indication: PROPHYLAXIS
     Route: 048
     Dates: start: 20091130, end: 20100125
  8. LOXONIN [Concomitant]
     Active Substance: LOXOPROFEN SODIUM
     Indication: NASOPHARYNGITIS
     Route: 048
     Dates: start: 20090501, end: 20090505
  9. FLOMOX [Concomitant]
     Active Substance: CEFCAPENE PIVOXIL HYDROCHLORIDE HYDRATE
     Indication: SKIN MASS
     Route: 048
     Dates: start: 20111117, end: 20111120
  10. ROCEPHIN [Concomitant]
     Active Substance: CEFTRIAXONE SODIUM
     Indication: BACTERIAL INFECTION
     Route: 065
     Dates: start: 20090601, end: 20090601
  11. FAROM [Concomitant]
     Active Substance: FAROPENEM SODIUM
     Indication: LYMPHADENOPATHY
     Route: 048
     Dates: start: 20160125, end: 20160201
  12. FAROM [Concomitant]
     Active Substance: FAROPENEM SODIUM
     Indication: PHARYNGITIS
     Route: 048
     Dates: start: 20160317, end: 20160323
  13. MIYA-BM [Concomitant]
     Active Substance: CLOSTRIDIUM BUTYRICUM SPORES STRAIN M-55
     Indication: FAECES SOFT
     Route: 048
     Dates: start: 20140710, end: 20140723
  14. MIYA-BM [Concomitant]
     Active Substance: CLOSTRIDIUM BUTYRICUM SPORES STRAIN M-55
     Indication: DIARRHOEA
     Route: 048
     Dates: start: 20151229, end: 20160118
  15. MIYA-BM [Concomitant]
     Active Substance: CLOSTRIDIUM BUTYRICUM SPORES STRAIN M-55
     Route: 048
     Dates: start: 20160616, end: 20160629
  16. ADONA                              /00056903/ [Concomitant]
     Active Substance: CARBAZOCHROME SODIUM SULFONATE
     Indication: METRORRHAGIA
     Dosage: UNK UNK, UNKNOWN FREQ.
     Route: 065
  17. OLOPATADINE HYDROCHLORIDE. [Concomitant]
     Active Substance: OLOPATADINE HYDROCHLORIDE
     Indication: RASH
     Route: 048
     Dates: start: 20160111, end: 20160113
  18. CEFTRIAXONE SODIUM. [Concomitant]
     Active Substance: CEFTRIAXONE SODIUM
     Indication: LYMPHADENITIS
     Route: 042
     Dates: start: 20160225, end: 20160228
  19. PREDNISOLONE. [Suspect]
     Active Substance: PREDNISOLONE
     Route: 048
     Dates: start: 20121123, end: 20130124
  20. MUCOSTA [Concomitant]
     Active Substance: REBAMIPIDE
     Indication: UPPER RESPIRATORY TRACT INFLAMMATION
     Route: 048
     Dates: start: 20071119, end: 20080107
  21. MUCOSTA [Concomitant]
     Active Substance: REBAMIPIDE
     Indication: PHARYNGITIS
     Route: 048
     Dates: start: 20090323, end: 20090429
  22. MUCOSTA [Concomitant]
     Active Substance: REBAMIPIDE
     Indication: PROPHYLAXIS
     Route: 048
     Dates: start: 20130110, end: 20130113
  23. TAKEPRON [Concomitant]
     Active Substance: LANSOPRAZOLE
     Indication: GASTRITIS
     Route: 048
     Dates: start: 20090323, end: 20090420
  24. LOXONIN [Concomitant]
     Active Substance: LOXOPROFEN SODIUM
     Indication: PYREXIA
     Dosage: 60 MG, AT PYREXIA
     Route: 048
     Dates: start: 20140204, end: 20140209
  25. LOXONIN [Concomitant]
     Active Substance: LOXOPROFEN SODIUM
     Route: 048
     Dates: start: 20150730, end: 20150802
  26. CRAVIT [Concomitant]
     Active Substance: LEVOFLOXACIN
     Indication: PHARYNGITIS
     Route: 048
     Dates: start: 20140220, end: 20140224
  27. CRAVIT [Concomitant]
     Active Substance: LEVOFLOXACIN
     Indication: PLEURISY
     Route: 048
     Dates: start: 20140310, end: 20140313
  28. CRAVIT [Concomitant]
     Active Substance: LEVOFLOXACIN
     Indication: LYMPHADENITIS
     Route: 048
     Dates: start: 20150129, end: 20150202
  29. CELECOX [Concomitant]
     Active Substance: CELECOXIB
     Indication: MYALGIA
  30. TRANSAMIN [Concomitant]
     Active Substance: TRANEXAMIC ACID
     Indication: METRORRHAGIA
     Dosage: UNK UNK, UNKNOWN FREQ.
     Route: 065
  31. LOCOID [Concomitant]
     Active Substance: HYDROCORTISONE BUTYRATE
     Indication: RASH
     Dosage: UNK UNK, UNKNOWN FREQ.
     Route: 050
     Dates: start: 20160114, end: 20160218
  32. PREDNISOLONE. [Suspect]
     Active Substance: PREDNISOLONE
     Indication: LUPUS NEPHRITIS
     Route: 048
  33. MUCOSTA [Concomitant]
     Active Substance: REBAMIPIDE
     Indication: NAUSEA
     Route: 048
     Dates: start: 20130214, end: 20130220
  34. MUCOSTA [Concomitant]
     Active Substance: REBAMIPIDE
     Dosage: 100 MG, AT PYREXIA
     Route: 048
     Dates: start: 20140529, end: 20140601
  35. TAKEPRON [Concomitant]
     Active Substance: LANSOPRAZOLE
     Route: 048
     Dates: start: 20141030
  36. ANTEBATE [Concomitant]
     Active Substance: BETAMETHASONE DIPROPIONATE
     Indication: RASH
     Dosage: UNK UNK, UNKNOWN FREQ.
     Route: 050
     Dates: start: 20160114, end: 20160218
  37. CRAVIT [Concomitant]
     Active Substance: LEVOFLOXACIN
     Route: 048
     Dates: start: 20150730, end: 20150805
  38. FAROM [Concomitant]
     Active Substance: FAROPENEM SODIUM
     Route: 048
     Dates: start: 20160616, end: 20160619
  39. INAVIR                             /00587301/ [Concomitant]
     Indication: INFLUENZA
     Route: 055
     Dates: start: 20130206, end: 20130206
  40. TAMIFLU [Concomitant]
     Active Substance: OSELTAMIVIR PHOSPHATE
     Indication: INFLUENZA
     Route: 048
     Dates: start: 20130214, end: 20130218
  41. DECADRON [Concomitant]
     Active Substance: DEXAMETHASONE
     Indication: LYMPHADENOPATHY
     Route: 048
     Dates: start: 20150611, end: 20150701
  42. TACROLIMUS. [Suspect]
     Active Substance: TACROLIMUS
     Indication: LUPUS NEPHRITIS
     Route: 048
     Dates: start: 20070910
  43. PREDNISOLONE. [Suspect]
     Active Substance: PREDNISOLONE
     Route: 048
     Dates: start: 20141120, end: 20141210
  44. AUGMENTIN [Suspect]
     Active Substance: AMOXICILLIN\CLAVULANATE POTASSIUM
     Indication: PLEURISY
     Route: 048
     Dates: start: 20151229, end: 20160103
  45. PLAQUENIL                          /00072602/ [Suspect]
     Active Substance: HYDROXYCHLOROQUINE DIPHOSPHATE
     Indication: SYSTEMIC LUPUS ERYTHEMATOSUS
     Dosage: UNK UNK, UNKNOWN FREQ.
     Route: 065
  46. CALCIUM LACTATE [Concomitant]
     Active Substance: CALCIUM LACTATE
     Indication: PROPHYLAXIS
     Route: 048
     Dates: end: 20110915
  47. GASTER [Concomitant]
     Active Substance: FAMOTIDINE
     Route: 048
     Dates: start: 20080811, end: 20081027
  48. MUCOSTA [Concomitant]
     Active Substance: REBAMIPIDE
     Route: 048
     Dates: start: 20160104, end: 20160123
  49. MUCODYNE [Concomitant]
     Active Substance: CARBOCYSTEINE
     Indication: BRONCHITIS
     Route: 048
     Dates: start: 20110303, end: 20110309
  50. LOXONIN [Concomitant]
     Active Substance: LOXOPROFEN SODIUM
     Route: 048
     Dates: start: 20160112, end: 20160117
  51. PRIMPERAN [Concomitant]
     Active Substance: METOCLOPRAMIDE HYDROCHLORIDE
     Indication: NAUSEA
     Route: 048
     Dates: start: 20081122, end: 20081125
  52. ANTEBATE [Concomitant]
     Active Substance: BETAMETHASONE DIPROPIONATE
     Indication: URTICARIA
     Dosage: UNKNOWN DOSE, 2-3 TIMES DAILY
     Route: 061
     Dates: start: 20110321, end: 20110324
  53. PREDONINE [Concomitant]
     Active Substance: PREDNISOLONE
     Route: 048
     Dates: start: 20141120, end: 20150412
  54. DECADRON [Concomitant]
     Active Substance: DEXAMETHASONE
     Indication: LUPUS NEPHRITIS
     Route: 048
     Dates: start: 20150430, end: 20150610
  55. DECADRON [Concomitant]
     Active Substance: DEXAMETHASONE
     Route: 048
     Dates: start: 20150702, end: 20150729
  56. DECADRON [Concomitant]
     Active Substance: DEXAMETHASONE
     Route: 048
     Dates: start: 20150827, end: 20160323
  57. DECADRON [Concomitant]
     Active Substance: DEXAMETHASONE
     Route: 048
     Dates: start: 20160324, end: 20160413
  58. DECADRON [Concomitant]
     Active Substance: DEXAMETHASONE
     Route: 048
     Dates: start: 20160526, end: 20160629
  59. MYSERA [Concomitant]
     Active Substance: MOMETASONE FUROATE
     Indication: ERYTHEMA
     Dosage: UNK UNK, UNKNOWN FREQ.
     Route: 050
     Dates: start: 20160426, end: 20160526
  60. PREDNISOLONE. [Suspect]
     Active Substance: PREDNISOLONE
     Route: 048
     Dates: start: 20071119, end: 20071210
  61. PREDNISOLONE. [Suspect]
     Active Substance: PREDNISOLONE
     Route: 048
     Dates: start: 20081201, end: 20091228
  62. PREDNISOLONE. [Suspect]
     Active Substance: PREDNISOLONE
     Route: 048
     Dates: start: 20120914, end: 20120927
  63. PREDNISOLONE. [Suspect]
     Active Substance: PREDNISOLONE
     Route: 048
     Dates: start: 20120928, end: 20121025
  64. PREDNISOLONE. [Suspect]
     Active Substance: PREDNISOLONE
     Route: 048
     Dates: start: 20121026, end: 20121122
  65. MUCOSTA [Concomitant]
     Active Substance: REBAMIPIDE
     Indication: NASOPHARYNGITIS
     Route: 048
     Dates: start: 20080811, end: 20081027
  66. MUCOSTA [Concomitant]
     Active Substance: REBAMIPIDE
     Indication: PYREXIA
     Route: 048
     Dates: start: 20091130, end: 20091228
  67. LOXONIN [Concomitant]
     Active Substance: LOXOPROFEN SODIUM
     Indication: PLEURISY
     Dosage: 60 MG, AT PYREXIA
     Route: 048
     Dates: start: 20140313, end: 20140319
  68. LOXONIN [Concomitant]
     Active Substance: LOXOPROFEN SODIUM
     Route: 048
     Dates: start: 20150129, end: 20150205
  69. LOXONIN [Concomitant]
     Active Substance: LOXOPROFEN SODIUM
     Route: 048
     Dates: start: 20160104, end: 20160107
  70. FLOMOX [Concomitant]
     Active Substance: CEFCAPENE PIVOXIL HYDROCHLORIDE HYDRATE
     Indication: PHARYNGITIS
     Route: 048
     Dates: start: 20120315, end: 20120318
  71. EBASTEL [Concomitant]
     Active Substance: EBASTINE
     Indication: URTICARIA
     Route: 048
     Dates: start: 20110321, end: 20110324
  72. CRAVIT [Concomitant]
     Active Substance: LEVOFLOXACIN
     Indication: PYREXIA
     Route: 048
     Dates: start: 20140204, end: 20140209
  73. FAROM [Concomitant]
     Active Substance: FAROPENEM SODIUM
     Indication: UPPER RESPIRATORY TRACT INFLAMMATION
     Route: 048
     Dates: start: 20140529, end: 20140601
  74. CALONAL [Concomitant]
     Active Substance: ACETAMINOPHEN
     Indication: INFLUENZA
     Route: 048
     Dates: start: 20130214, end: 20130218
  75. PREDONINE [Concomitant]
     Active Substance: PREDNISOLONE
     Indication: LUPUS NEPHRITIS
     Route: 048
     Dates: start: 20141015, end: 20141119
  76. DECADRON [Concomitant]
     Active Substance: DEXAMETHASONE
     Route: 048
     Dates: start: 20150730, end: 20150826
  77. DECADRON [Concomitant]
     Active Substance: DEXAMETHASONE
     Route: 048
     Dates: start: 20160714, end: 20160914
  78. FUNGIZONE [Concomitant]
     Active Substance: AMPHOTERICIN B
     Dosage: UNK UNK, UNKNOWN FREQ.
     Route: 065
  79. RESTAMIN A KOWA [Concomitant]
     Indication: RASH
     Dosage: UNK UNK, UNKNOWN FREQ.
     Route: 050
     Dates: start: 20160112, end: 20160218
  80. TALION                             /01587402/ [Concomitant]
     Active Substance: BEPOTASTINE BESILATE
     Indication: RASH
     Route: 048
     Dates: start: 20160118, end: 20160124
  81. REBAMIDE [Concomitant]
     Indication: LYMPHADENITIS
     Route: 048
     Dates: start: 20160226, end: 20160301
  82. PROTOPIC [Concomitant]
     Active Substance: TACROLIMUS
     Indication: ERYTHEMA
     Dosage: UNK UNK, UNKNOWN FREQ.
     Route: 050
     Dates: start: 20160426, end: 20160526
  83. PREDNISOLONE. [Suspect]
     Active Substance: PREDNISOLONE
     Route: 048
     Dates: start: 20070910, end: 20071119
  84. PREDNISOLONE. [Suspect]
     Active Substance: PREDNISOLONE
     Route: 048
     Dates: start: 20131003, end: 20141014
  85. PREDNISOLONE. [Suspect]
     Active Substance: PREDNISOLONE
     Route: 048
     Dates: start: 20141211, end: 20150412
  86. PLAQUENIL                          /00072602/ [Suspect]
     Active Substance: HYDROXYCHLOROQUINE DIPHOSPHATE
     Indication: LUPUS NEPHRITIS
     Route: 048
     Dates: start: 20160602
  87. MUCOSTA [Concomitant]
     Active Substance: REBAMIPIDE
     Route: 048
     Dates: start: 20150730, end: 20150802
  88. MUCODYNE [Concomitant]
     Active Substance: CARBOCYSTEINE
     Indication: PHARYNGITIS
     Dosage: UNK UNK, UNKNOWN FREQ.
     Route: 065
  89. LAC-B [Concomitant]
     Active Substance: BIFIDOBACTERIUM SPP.
     Indication: NAUSEA
     Route: 048
     Dates: start: 20081122, end: 20081125
  90. FLOMOX [Concomitant]
     Active Substance: CEFCAPENE PIVOXIL HYDROCHLORIDE HYDRATE
     Indication: BACTERIAL INFECTION
     Route: 048
     Dates: start: 20090601, end: 20090606
  91. FLOMOX [Concomitant]
     Active Substance: CEFCAPENE PIVOXIL HYDROCHLORIDE HYDRATE
     Route: 048
     Dates: start: 20120529, end: 20120602
  92. OMEPRAL                            /00661201/ [Concomitant]
     Active Substance: OMEPRAZOLE
     Indication: PROPHYLAXIS AGAINST GASTROINTESTINAL ULCER
     Route: 048
     Dates: start: 20120824, end: 20130927
  93. CRAVIT [Concomitant]
     Active Substance: LEVOFLOXACIN
     Route: 048
     Dates: start: 20150604, end: 20150610
  94. CRAVIT [Concomitant]
     Active Substance: LEVOFLOXACIN
     Route: 048
     Dates: start: 20160225, end: 20160305
  95. FAROM [Concomitant]
     Active Substance: FAROPENEM SODIUM
     Indication: ARTHRALGIA
     Route: 048
     Dates: start: 20140828, end: 20140903
  96. DECADRON [Concomitant]
     Active Substance: DEXAMETHASONE
     Dosage: 2.0 MG, ONCE DAILY
     Route: 048
     Dates: start: 20160414, end: 20160511
  97. FUNGIZONE [Concomitant]
     Active Substance: AMPHOTERICIN B
     Indication: ORAL CANDIDIASIS
     Route: 048
     Dates: start: 20141203, end: 20150122
  98. FERROMIA [Concomitant]
     Active Substance: SODIUM FERROUS CITRATE
     Indication: ANAEMIA
     Dates: start: 20150108, end: 20150430
  99. CELECOX [Concomitant]
     Active Substance: CELECOXIB
     Indication: ARTHRALGIA
     Route: 048
     Dates: start: 20150312, end: 20160217
  100. NAUZELIN [Concomitant]
     Active Substance: DOMPERIDONE
     Indication: NAUSEA
     Route: 048
     Dates: start: 20151029, end: 20151104
  101. GENTACIN [Concomitant]
     Active Substance: GENTAMICIN SULFATE
     Indication: RASH
     Dosage: UNK UNK, UNKNOWN FREQ.
     Route: 050
     Dates: start: 20160204, end: 20160218
  102. LOXOPROFEN [Concomitant]
     Active Substance: LOXOPROFEN
     Indication: LYMPHADENITIS
     Route: 048
     Dates: start: 20160223, end: 20160229
  103. DEQUALINIUM [Concomitant]
     Active Substance: DEQUALINIUM
     Indication: PHARYNGITIS
     Dosage: 0.25 MG, ONCE DAILY
     Route: 048
     Dates: start: 20160616, end: 20160629
  104. PREDNISOLONE. [Suspect]
     Active Substance: PREDNISOLONE
     Route: 048
     Dates: start: 20091229, end: 20110526
  105. GASTER [Concomitant]
     Active Substance: FAMOTIDINE
     Indication: PROPHYLAXIS
     Route: 048
     Dates: end: 20071210
  106. MUCOSTA [Concomitant]
     Active Substance: REBAMIPIDE
     Indication: GASTRITIS
     Route: 048
     Dates: start: 20120529, end: 20120602
  107. MUCOSTA [Concomitant]
     Active Substance: REBAMIPIDE
     Dosage: 100 MG, AT PYREXIA
     Route: 048
     Dates: start: 20140313, end: 20140319
  108. LOXONIN [Concomitant]
     Active Substance: LOXOPROFEN SODIUM
     Indication: UPPER RESPIRATORY TRACT INFLAMMATION
     Dosage: 60 MG, AT PYREXIA
     Route: 048
     Dates: start: 20140220, end: 20140224
  109. FAROM [Concomitant]
     Active Substance: FAROPENEM SODIUM
     Indication: PYREXIA
     Route: 048
     Dates: start: 20140313, end: 20140319
  110. KLARICID                           /00984601/ [Concomitant]
     Active Substance: CLARITHROMYCIN
     Indication: PYREXIA
     Route: 048
     Dates: start: 20140313, end: 20140319
  111. DECADRON [Concomitant]
     Active Substance: DEXAMETHASONE
     Route: 048
     Dates: start: 20160512, end: 20160525
  112. DECADRON [Concomitant]
     Active Substance: DEXAMETHASONE
     Dosage: 2.0 MG, ONCE DAILY
     Route: 048
     Dates: start: 20160630, end: 20160713
  113. LEVOFLOXACIN. [Concomitant]
     Active Substance: LEVOFLOXACIN
     Indication: LYMPHADENOPATHY
     Route: 048
     Dates: start: 20160310, end: 20160316
  114. PREDNISOLONE. [Suspect]
     Active Substance: PREDNISOLONE
     Route: 048
     Dates: start: 20110527, end: 20120815
  115. PREDNISOLONE. [Suspect]
     Active Substance: PREDNISOLONE
     Route: 048
     Dates: start: 20130125, end: 20131002
  116. ONEALFA [Concomitant]
     Active Substance: ALFACALCIDOL
     Indication: PROPHYLAXIS
     Dosage: 0.5 ?G, ONCE DAILY
     Route: 048
  117. MUCOSTA [Concomitant]
     Active Substance: REBAMIPIDE
     Indication: PLEURISY
     Dosage: 100 MG, AT PYREXIA
     Route: 048
     Dates: start: 20140204, end: 20140209
  118. MUCOSTA [Concomitant]
     Active Substance: REBAMIPIDE
     Dosage: 100 MG, AT PYREXIA
     Route: 048
     Dates: start: 20140220, end: 20140224
  119. LOXONIN [Concomitant]
     Active Substance: LOXOPROFEN SODIUM
     Indication: PHARYNGITIS
     Route: 048
     Dates: start: 20120529, end: 20120602
  120. LOXONIN [Concomitant]
     Active Substance: LOXOPROFEN SODIUM
     Dosage: 60 MG, AT PYREXIA
     Route: 048
     Dates: start: 20140529, end: 20140601
  121. DOGMATYL [Concomitant]
     Active Substance: SULPIRIDE
     Indication: GASTRITIS
     Route: 048
     Dates: start: 20091130, end: 20091228
  122. PL [Concomitant]
     Active Substance: ACETAMINOPHEN\CAFFEINE\PROMETHAZINE\SALICYLAMIDE
     Indication: NASOPHARYNGITIS
     Route: 048
     Dates: start: 20130110, end: 20130113
  123. CRAVIT [Concomitant]
     Active Substance: LEVOFLOXACIN
     Route: 048
     Dates: start: 20160104, end: 20160110
  124. FAROM [Concomitant]
     Active Substance: FAROPENEM SODIUM
     Indication: NECK PAIN
     Route: 048
     Dates: start: 20140731, end: 20140806
  125. PREDONINE [Concomitant]
     Active Substance: PREDNISOLONE
     Route: 048
     Dates: start: 20150413, end: 20150429
  126. DECADRON [Concomitant]
     Active Substance: DEXAMETHASONE
     Route: 048
     Dates: start: 20160915
  127. TRANSAMIN [Concomitant]
     Active Substance: TRANEXAMIC ACID
     Indication: PHARYNGITIS
     Dosage: UNK UNK, UNKNOWN FREQ.
     Route: 065

REACTIONS (31)
  - Bacterial infection [Recovering/Resolving]
  - Pyrexia [Recovered/Resolved]
  - Diarrhoea [Recovered/Resolved]
  - Lymphadenitis [Recovering/Resolving]
  - Influenza [Recovering/Resolving]
  - Neck pain [Recovering/Resolving]
  - Pleurisy [Recovering/Resolving]
  - Nasopharyngitis [Recovering/Resolving]
  - Pharyngitis [Recovering/Resolving]
  - Faeces soft [Recovering/Resolving]
  - Hyperuricaemia [Recovered/Resolved]
  - Anaemia [Recovered/Resolved]
  - Upper respiratory tract inflammation [Recovering/Resolving]
  - Lymphadenopathy [Recovered/Resolved]
  - Pharyngitis [Recovered/Resolved]
  - Systemic lupus erythematosus [Recovering/Resolving]
  - Lymphadenopathy [Recovering/Resolving]
  - Skin mass [Recovering/Resolving]
  - Gastritis [Recovering/Resolving]
  - Oral candidiasis [Recovered/Resolved]
  - Melanocytic naevus [Recovered/Resolved]
  - Nausea [Recovering/Resolving]
  - Arthralgia [Recovered/Resolved]
  - Rash [Recovering/Resolving]
  - Erythema [Recovered/Resolved]
  - Nausea [Recovered/Resolved]
  - Myalgia [Recovered/Resolved]
  - Bronchitis [Recovering/Resolving]
  - Diarrhoea [Recovering/Resolving]
  - Metrorrhagia [Recovered/Resolved]
  - Urticaria [Recovering/Resolving]

NARRATIVE: CASE EVENT DATE: 20071112
